FAERS Safety Report 6491437-8 (Version None)
Quarter: 2009Q4

REPORT INFORMATION
  Report Type: 
  Country: None (occurrence: None)
  Receive Date: 20091123
  Receipt Date: 20090730
  Transmission Date: 20100525
  Serious: No
  Sender: FDA-Public Use
  Company Number: 8049720

PATIENT
  Age: 38 Year
  Sex: Male
  Weight: 65.77 kg

DRUGS (2)
  1. CIMZIA [Suspect]
     Indication: CROHN'S DISEASE
     Dosage: 400 MG 1/2D SC
     Route: 058
     Dates: start: 20090114
  2. METHOTREXATE [Concomitant]

REACTIONS (1)
  - RASH [None]
